FAERS Safety Report 6920315-2 (Version None)
Quarter: 2010Q3

REPORT INFORMATION
  Report Type: 
  Country: None (occurrence: None)
  Receive Date: 20100809
  Receipt Date: 20100730
  Transmission Date: 20110219
  Serious: Yes (Other)
  Sender: FDA-Public Use
  Company Number: 1000015445

PATIENT
  Age: 29 Year
  Sex: Male

DRUGS (12)
  1. LEXAPRO [Suspect]
     Indication: DEPRESSION
     Dosage: 10 MG (10 MG, 1 IN 1 D), ORAL
     Route: 048
     Dates: start: 20100618, end: 20100701
  2. LEXAPRO [Suspect]
     Indication: DEPRESSION
     Dosage: 20 MG (20 MG, 1 IN 1 D), ORAL
     Route: 048
     Dates: start: 20100701, end: 20100701
  3. TYLENOL W/ CODEINE NO. 4 [Concomitant]
  4. KLONOPIN [Concomitant]
  5. HYDROCHLOROTHIAZIDE [Concomitant]
  6. POTASSIUM [Concomitant]
  7. TENORMIN [Concomitant]
  8. PHENERGAN [Concomitant]
  9. OMEPRAZOLE [Concomitant]
  10. BENADRYL [Concomitant]
  11. ACETAMINOPHEN [Concomitant]
  12. ASPIRIN [Concomitant]

REACTIONS (5)
  - BALANCE DISORDER [None]
  - DIZZINESS [None]
  - FALL [None]
  - HYPONATRAEMIA [None]
  - LOSS OF CONSCIOUSNESS [None]
